FAERS Safety Report 21043313 (Version 1)
Quarter: 2022Q3

REPORT INFORMATION
  Report Type: Spontaneous
  Country: RU (occurrence: None)
  Receive Date: 20220705
  Receipt Date: 20220705
  Transmission Date: 20221026
  Serious: Yes (Other)
  Sender: FDA-Public Use
  Company Number: RU-ROCHE-3127488

PATIENT

DRUGS (2)
  1. ALECTINIB [Suspect]
     Active Substance: ALECTINIB
     Indication: Lung neoplasm malignant
     Dosage: 6TH LINE THERAPY
     Route: 065
     Dates: start: 20200430, end: 20210917
  2. ALECTINIB [Suspect]
     Active Substance: ALECTINIB
     Route: 065
     Dates: start: 20210917

REACTIONS (5)
  - External hydrocephalus [Unknown]
  - Metastases to central nervous system [Unknown]
  - Osteonecrosis [Unknown]
  - Fracture treatment [Unknown]
  - Off label use [Unknown]
